FAERS Safety Report 14548037 (Version 2)
Quarter: 2018Q1

REPORT INFORMATION
  Report Type: Report from Study
  Country: None (occurrence: IT)
  Receive Date: 20180219
  Receipt Date: 20180220
  Transmission Date: 20180509
  Serious: Yes (Death)
  Sender: FDA-Public Use
  Company Number: IT-ABBVIE-18K-083-2261926-00

PATIENT
  Age: 77 Year
  Sex: Male

DRUGS (1)
  1. DUODOPA [Suspect]
     Active Substance: CARBIDOPA\LEVODOPA
     Indication: PARKINSON^S DISEASE
     Dosage: MD 1+3?CR 4?ED 2
     Route: 050
     Dates: start: 20160110, end: 20180123

REACTIONS (1)
  - Gastrointestinal carcinoma [Fatal]

NARRATIVE: CASE EVENT DATE: 201801
